FAERS Safety Report 11626232 (Version 1)
Quarter: 2015Q4

REPORT INFORMATION
  Report Type: Spontaneous
  Country: GB (occurrence: GB)
  Receive Date: 20151013
  Receipt Date: 20151013
  Transmission Date: 20160304
  Serious: Yes (Hospitalization)
  Sender: FDA-Public Use
  Company Number: PHHY2015GB121989

PATIENT

DRUGS (2)
  1. PIPERACILLIN, TAZOBACTAM [Suspect]
     Active Substance: PIPERACILLIN SODIUM\TAZOBACTAM SODIUM
     Indication: OSTEOMYELITIS
     Route: 065
     Dates: start: 20140424, end: 20140510
  2. SODIUM CHLORIDE. [Suspect]
     Active Substance: SODIUM CHLORIDE
     Indication: OSTEOMYELITIS
     Route: 065
     Dates: start: 20140424, end: 20140510

REACTIONS (3)
  - Pyrexia [Unknown]
  - Vomiting [Unknown]
  - C-reactive protein increased [Unknown]
